FAERS Safety Report 23429583 (Version 1)
Quarter: 2024Q1

REPORT INFORMATION
  Report Type: Spontaneous
  Country: US (occurrence: US)
  Receive Date: 20240122
  Receipt Date: 20240122
  Transmission Date: 20240410
  Serious: Yes (Other)
  Sender: FDA-Public Use
  Company Number: US-PFIZER INC-202300046214

PATIENT
  Age: 77 Year
  Sex: Female
  Weight: 68.39 kg

DRUGS (4)
  1. IBRANCE [Suspect]
     Active Substance: PALBOCICLIB
     Indication: Breast cancer metastatic
     Dosage: 125 MG, CYCLIC (ONCE A DAY; 21 DAYS ON AND 7 DAYS OFF)
     Dates: start: 202209
  2. LETROZOLE [Concomitant]
     Active Substance: LETROZOLE
  3. ZOMETA [Concomitant]
     Active Substance: ZOLEDRONIC ACID
     Dosage: UNK, EVERY 3 MONTHS
  4. ZITHROMAX [Concomitant]
     Active Substance: AZITHROMYCIN DIHYDRATE

REACTIONS (4)
  - Neutropenia [Unknown]
  - Pancytopenia [Unknown]
  - Anaemia [Unknown]
  - Neoplasm recurrence [Unknown]
